FAERS Safety Report 20079797 (Version 5)
Quarter: 2023Q4

REPORT INFORMATION
  Report Type: Other
  Country: AU (occurrence: None)
  Receive Date: 20211117
  Receipt Date: 20231108
  Transmission Date: 20240110
  Serious: Yes (Hospitalization, Other)
  Sender: FDA-Public Use
  Company Number: AU-ROCHE-2953049

PATIENT
  Age: 55 Year
  Sex: Female
  Weight: 51 kg

DRUGS (11)
  1. OCREVUS [Suspect]
     Active Substance: OCRELIZUMAB
     Indication: Multiple sclerosis
     Route: 042
     Dates: start: 201811
  2. OCREVUS [Suspect]
     Active Substance: OCRELIZUMAB
     Route: 042
  3. BACLOFEN [Concomitant]
     Active Substance: BACLOFEN
     Route: 048
  4. DITROPAN [Concomitant]
     Active Substance: OXYBUTYNIN CHLORIDE
     Dosage: HALF
     Route: 048
  5. ENDEP [Concomitant]
     Active Substance: AMITRIPTYLINE HYDROCHLORIDE
     Route: 048
  6. JARDIANCE [Concomitant]
     Active Substance: EMPAGLIFLOZIN
     Route: 048
  7. PROLIA [Concomitant]
     Active Substance: DENOSUMAB
     Dosage: 60 MG/1 ML
  8. RAMIPRIL [Concomitant]
     Active Substance: RAMIPRIL
     Route: 048
  9. ZOCOR [Concomitant]
     Active Substance: SIMVASTATIN
     Route: 048
  10. ZOLOFT [Concomitant]
     Active Substance: SERTRALINE HYDROCHLORIDE
     Route: 048
  11. AUGMENTIN [Concomitant]
     Active Substance: AMOXICILLIN\CLAVULANATE POTASSIUM

REACTIONS (9)
  - Escherichia infection [Unknown]
  - Urinary tract infection [Recovering/Resolving]
  - Urinary tract infection [Recovered/Resolved]
  - Device dislocation [Recovered/Resolved]
  - Urinary incontinence [Not Recovered/Not Resolved]
  - Sepsis [Unknown]
  - Vulvovaginal candidiasis [Recovered/Resolved]
  - Synovial cyst [Recovered/Resolved]
  - Urinary tract infection [Not Recovered/Not Resolved]

NARRATIVE: CASE EVENT DATE: 20211020
